FAERS Safety Report 18355206 (Version 1)
Quarter: 2020Q4

REPORT INFORMATION
  Report Type: Spontaneous
  Country: US (occurrence: US)
  Receive Date: 20201006
  Receipt Date: 20201006
  Transmission Date: 20210114
  Serious: Yes (Hospitalization)
  Sender: FDA-Public Use
  Company Number: None

PATIENT
  Age: 72 Year
  Sex: Male

DRUGS (1)
  1. GEMCITABINE (GEMCITABINE HCL 2GM/VIL INJ) [Suspect]
     Active Substance: GEMCITABINE HYDROCHLORIDE
     Indication: SEIZURE
     Dosage: ?          OTHER FREQUENCY:OTHER;?
     Route: 042
     Dates: start: 20200812, end: 20200825

REACTIONS (4)
  - Transient ischaemic attack [None]
  - Hemiparesis [None]
  - Seizure [None]
  - Embolic stroke [None]

NARRATIVE: CASE EVENT DATE: 20200825
